FAERS Safety Report 10373356 (Version 2)
Quarter: 2014Q3

REPORT INFORMATION
  Report Type: Spontaneous
  Country: AU (occurrence: AU)
  Receive Date: 20140808
  Receipt Date: 20140821
  Transmission Date: 20150326
  Serious: Yes (Other)
  Sender: FDA-Public Use
  Company Number: AU-PFIZER INC-2014216905

PATIENT
  Age: 58 Year
  Sex: Female
  Weight: 78 kg

DRUGS (1)
  1. CLEOCIN [Suspect]
     Active Substance: CLINDAMYCIN PHOSPHATE
     Indication: ORAL INFECTION
     Dosage: 150 MG, 3X/DAY
     Route: 048
     Dates: start: 20140522, end: 201405

REACTIONS (20)
  - Lethargy [Unknown]
  - Abdominal discomfort [Recovered/Resolved]
  - Urinary retention [Unknown]
  - Hypersensitivity [Unknown]
  - Pollakiuria [Unknown]
  - Chills [Unknown]
  - Pyrexia [Unknown]
  - Abdominal distension [Unknown]
  - Somnolence [Unknown]
  - Diarrhoea [Recovered/Resolved]
  - Fluid retention [Unknown]
  - Sensory disturbance [Unknown]
  - Hypotonia [Unknown]
  - Urinary tract disorder [Unknown]
  - Swelling face [Unknown]
  - Malaise [Recovered/Resolved]
  - Bladder dilatation [Unknown]
  - Skin odour abnormal [Unknown]
  - Delirium [Unknown]
  - Feeling cold [Unknown]

NARRATIVE: CASE EVENT DATE: 201405
